FAERS Safety Report 10898546 (Version 1)
Quarter: 2015Q1

REPORT INFORMATION
  Report Type: Spontaneous
  Country: US (occurrence: US)
  Receive Date: 20150309
  Receipt Date: 20150309
  Transmission Date: 20150721
  Serious: Yes (Other)
  Sender: FDA-Public Use
  Company Number: US-TEVA-545484USA

PATIENT
  Age: 55 Year
  Sex: Female

DRUGS (3)
  1. COLECALCIFEROL [Concomitant]
     Active Substance: CHOLECALCIFEROL
     Indication: HYPERPARATHYROIDISM
     Dosage: 800 IU (INTERNATIONAL UNIT) DAILY;
     Route: 065
  2. CALCITRIOL. [Suspect]
     Active Substance: CALCITRIOL
     Indication: HYPOPARATHYROIDISM
     Dosage: .25 MICROGRAM DAILY;
     Route: 065
  3. CALCIUM CARBONATE. [Concomitant]
     Active Substance: CALCIUM CARBONATE
     Indication: HYPERPARATHYROIDISM
     Dosage: 1200 MILLIGRAM DAILY;
     Route: 065

REACTIONS (2)
  - B-cell lymphoma [Unknown]
  - Hypercalcaemia [Recovered/Resolved]
